FAERS Safety Report 10549556 (Version 1)
Quarter: 2014Q4

REPORT INFORMATION
  Report Type: Spontaneous
  Country: GB (occurrence: GB)
  Receive Date: 20141028
  Receipt Date: 20141028
  Transmission Date: 20150529
  Serious: Yes (Life-Threatening, Disabling, Other)
  Sender: FDA-Public Use
  Company Number: GB-GLAXOSMITHKLINE-GB2014GSK009808

PATIENT
  Age: 60 Year
  Sex: Male
  Weight: 118 kg

DRUGS (4)
  1. PROPAFENONE. [Suspect]
     Active Substance: PROPAFENONE
     Indication: ATRIAL FIBRILLATION
     Dosage: UNK
     Route: 065
     Dates: start: 20000114, end: 2014
  2. DABIGATRAN [Concomitant]
     Active Substance: DABIGATRAN
  3. NAPROXEN. [Concomitant]
     Active Substance: NAPROXEN
  4. BISOPROLOL [Suspect]
     Active Substance: BISOPROLOL

REACTIONS (1)
  - Multiple system atrophy [Not Recovered/Not Resolved]
